FAERS Safety Report 7635845-8 (Version None)
Quarter: 2011Q3

REPORT INFORMATION
  Report Type: 
  Country: None (occurrence: None)
  Receive Date: 20110726
  Receipt Date: 20110712
  Transmission Date: 20111222
  Serious: Yes (Hospitalization)
  Sender: FDA-Public Use
  Company Number: NL-MYLANLABS-2011S1014481

PATIENT
  Age: 50 Year
  Sex: Female

DRUGS (2)
  1. LISINOPRIL/HYDROCHLOORTHIAZIDE ACTAVIS [Concomitant]
     Indication: PRODUCT USED FOR UNKNOWN INDICATION
     Route: 048
  2. OMEPRAZOLE [Suspect]
     Indication: DYSPEPSIA
     Dosage: 20 MD 1DD1
     Route: 048
     Dates: start: 20110615, end: 20110629

REACTIONS (9)
  - ARTHRALGIA [None]
  - DRY MOUTH [None]
  - HYPERHIDROSIS [None]
  - DISTURBANCE IN ATTENTION [None]
  - SLEEP DISORDER [None]
  - NAUSEA [None]
  - MYALGIA [None]
  - RASH [None]
  - HEADACHE [None]
